FAERS Safety Report 10285431 (Version 2)
Quarter: 2014Q3

REPORT INFORMATION
  Report Type: Spontaneous
  Country: IT (occurrence: IT)
  Receive Date: 20140708
  Receipt Date: 20140718
  Transmission Date: 20150326
  Serious: Yes (Other)
  Sender: FDA-Public Use
  Company Number: IT-ROCHE-1429874

PATIENT
  Age: 69 Year
  Sex: Female

DRUGS (2)
  1. UNFRACTIONATED HEPARIN [Suspect]
     Active Substance: HEPARIN SODIUM
     Indication: PRODUCT USED FOR UNKNOWN INDICATION
     Route: 042
  2. ACTILYSE [Suspect]
     Active Substance: ALTEPLASE
     Indication: PULMONARY EMBOLISM
     Dosage: 10 MG,PULSE SPRAY INTO LEFT PA THROMBUS
     Route: 013

REACTIONS (3)
  - Respiratory distress [Recovered/Resolved]
  - Haemoptysis [Unknown]
  - Haemoglobin decreased [Unknown]
